FAERS Safety Report 6181656-2 (Version None)
Quarter: 2009Q2

REPORT INFORMATION
  Report Type: 
  Country: None (occurrence: None)
  Receive Date: 20090506
  Receipt Date: 20090428
  Transmission Date: 20091009
  Serious: Yes (Death)
  Sender: FDA-Public Use
  Company Number: A0782631A

PATIENT
  Sex: Female
  Weight: 116 kg

DRUGS (4)
  1. SERETIDE [Suspect]
     Indication: ASTHMA
     Dates: start: 20000101, end: 20090406
  2. CAPTOPRIL [Concomitant]
     Dates: end: 20090406
  3. CLARITIN [Concomitant]
     Dates: start: 20010101, end: 20090406
  4. PREDNISOLONE [Concomitant]
     Dosage: 20MG FOUR TIMES PER DAY
     Dates: start: 20000101, end: 20090406

REACTIONS (1)
  - RESPIRATORY FAILURE [None]
